FAERS Safety Report 20434391 (Version 2)
Quarter: 2022Q1

REPORT INFORMATION
  Report Type: Report from Study
  Country: BR (occurrence: BR)
  Receive Date: 20220206
  Receipt Date: 20220315
  Transmission Date: 20220423
  Serious: Yes (Other)
  Sender: FDA-Public Use
  Company Number: BR-NOVARTISPH-NVSC2022BR022184

PATIENT
  Age: 63 Year
  Sex: Male

DRUGS (2)
  1. DIOVAN [Suspect]
     Active Substance: VALSARTAN
     Indication: Hypertension
     Dosage: 320 MG, QD
     Route: 065
     Dates: start: 2009
  2. DIOVAN [Suspect]
     Active Substance: VALSARTAN
     Dosage: BID (STARTED 8 YEARS AGO)
     Route: 065

REACTIONS (4)
  - Cerebrovascular accident [Unknown]
  - Cerebral thrombosis [Unknown]
  - Malaise [Unknown]
  - Cardiac failure [Unknown]

NARRATIVE: CASE EVENT DATE: 20220127
